FAERS Safety Report 21728982 (Version 1)
Quarter: 2022Q4

REPORT INFORMATION
  Report Type: Spontaneous
  Country: US (occurrence: US)
  Receive Date: 20221214
  Receipt Date: 20221214
  Transmission Date: 20230112
  Serious: No
  Sender: FDA-Public Use
  Company Number: US-ALLERGAN-2224488US

PATIENT
  Age: 61 Year
  Sex: Female

DRUGS (4)
  1. DALVANCE [Suspect]
     Active Substance: DALBAVANCIN
     Indication: Bursitis
     Dosage: ACTUAL: ADDITIONAL BECAUSE SHE WAS NOT ABLE TO GET THE FULL DOSE DURING THE INITIAL DALVANCE INFUSIO
     Route: 042
     Dates: start: 20220511, end: 20220511
  2. DALVANCE [Suspect]
     Active Substance: DALBAVANCIN
     Dosage: 1500 MG, SINGLE
     Route: 042
     Dates: start: 20220419, end: 20220419
  3. LANTUS [Concomitant]
     Active Substance: INSULIN GLARGINE
     Indication: Diabetes mellitus
  4. NOVOLOG [Concomitant]
     Active Substance: INSULIN ASPART
     Indication: Diabetes mellitus

REACTIONS (9)
  - Flank pain [Recovered/Resolved]
  - Dyspnoea [Recovered/Resolved]
  - Chest pain [Recovered/Resolved]
  - Blood glucose increased [Unknown]
  - Infusion site extravasation [Not Recovered/Not Resolved]
  - Product administration interrupted [Unknown]
  - Swelling [Recovered/Resolved]
  - Rash [Recovered/Resolved]
  - Pruritus [Recovered/Resolved]

NARRATIVE: CASE EVENT DATE: 20220419
